FAERS Safety Report 21487258 (Version 1)
Quarter: 2022Q4

REPORT INFORMATION
  Report Type: Spontaneous
  Country: TH (occurrence: TH)
  Receive Date: 20221020
  Receipt Date: 20221020
  Transmission Date: 20230112
  Serious: Yes (Other)
  Sender: FDA-Public Use
  Company Number: TH-ORGANON-O2210THA001448

PATIENT
  Age: 49 Year
  Sex: Female

DRUGS (2)
  1. EBASTINE [Suspect]
     Active Substance: EBASTINE
     Dosage: UNK
     Route: 048
     Dates: start: 20221018
  2. EUTHYROX [Concomitant]
     Active Substance: LEVOTHYROXINE SODIUM
     Dosage: UNK

REACTIONS (5)
  - Suicidal ideation [Unknown]
  - Hallucination [Unknown]
  - Somnolence [Not Recovered/Not Resolved]
  - Agitation [Unknown]
  - Depression [Unknown]

NARRATIVE: CASE EVENT DATE: 20221018
